FAERS Safety Report 14071893 (Version 2)
Quarter: 2018Q3

REPORT INFORMATION
  Report Type: Report from Study
  Country: US (occurrence: US)
  Receive Date: 20171010
  Receipt Date: 20180924
  Transmission Date: 20181010
  Serious: No
  Sender: FDA-Public Use
  Company Number: US-SA-2017SA141472

PATIENT
  Age: 44 Year
  Sex: Female

DRUGS (3)
  1. DUPILUMAB [Suspect]
     Active Substance: DUPILUMAB
     Indication: DERMATITIS ATOPIC
     Dosage: 300 MG, QOW
     Dates: start: 201706
  2. MYCOPHENOLATE MOFETIL. [Concomitant]
     Active Substance: MYCOPHENOLATE MOFETIL
     Dosage: UNK
  3. DUPILUMAB [Suspect]
     Active Substance: DUPILUMAB
     Indication: ECZEMA

REACTIONS (9)
  - Eye pruritus [Not Recovered/Not Resolved]
  - Pruritus [Unknown]
  - Skin irritation [Not Recovered/Not Resolved]
  - Eye irritation [Not Recovered/Not Resolved]
  - Weight increased [Recovering/Resolving]
  - Swelling [Unknown]
  - Dry eye [Not Recovered/Not Resolved]
  - Eczema eyelids [Not Recovered/Not Resolved]
  - Blepharitis [Not Recovered/Not Resolved]

NARRATIVE: CASE EVENT DATE: 2017
